FAERS Safety Report 8886329 (Version 2)
Quarter: 2013Q1

REPORT INFORMATION
  Report Type: Report from Study
  Country: AU (occurrence: AU)
  Receive Date: 20121105
  Receipt Date: 20130208
  Transmission Date: 20140127
  Serious: Yes (Other)
  Sender: FDA-Public Use
  Company Number: PHHY2012AU100075

PATIENT
  Sex: Female

DRUGS (8)
  1. CLOZARIL [Suspect]
     Indication: SCHIZOPHRENIA
     Dosage: 375 MG, UNK
     Route: 048
     Dates: start: 20000221
  2. CALCIUM CARBONATE [Concomitant]
     Dosage: 1500 MG, QD
     Route: 048
  3. GLICLAZIDE [Concomitant]
     Dosage: 30 MG, QHS
     Route: 048
  4. ATORVASTATIN [Concomitant]
     Dosage: 40 MG, QHS
     Route: 048
  5. PERINDOPRIL [Concomitant]
     Dosage: 10 MG, QD
     Route: 048
  6. IRBESARTAN [Concomitant]
     Dosage: 75 MG, QD
     Route: 048
  7. FUROSEMIDE [Concomitant]
     Dosage: 20 MG, QD
     Route: 048
  8. SODIUM VALPROATE [Concomitant]
     Dosage: 1000 MG, QHS
     Route: 048

REACTIONS (7)
  - Nephropathy [Unknown]
  - Creatinine renal clearance decreased [Unknown]
  - Renal impairment [Unknown]
  - Hepatitis C [Unknown]
  - Diabetes mellitus [Unknown]
  - Obsessive-compulsive disorder [Unknown]
  - Phobia [Unknown]
